APPROVED DRUG PRODUCT: HYDROCORTISONE BUTYRATE
Active Ingredient: HYDROCORTISONE BUTYRATE
Strength: 0.1%
Dosage Form/Route: CREAM;TOPICAL
Application: A076654 | Product #001 | TE Code: AB1
Applicant: TARO PHARMACEUTICAL INDUSTRIES LTD
Approved: Aug 3, 2005 | RLD: No | RS: No | Type: RX